FAERS Safety Report 4699634-9 (Version None)
Quarter: 2005Q2

REPORT INFORMATION
  Report Type: 
  Country: None (occurrence: None)
  Receive Date: 20050623
  Receipt Date: 20050610
  Transmission Date: 20051028
  Serious: Yes (Other)
  Sender: FDA-Public Use
  Company Number: HQWYE363210JUN05

PATIENT
  Age: 14 Year
  Sex: Female

DRUGS (3)
  1. ANCARON (AMIODARONE, TABLET) [Suspect]
     Indication: VENTRICULAR ARRHYTHMIA
     Dosage: ORAL
     Route: 048
  2. PROPRANOLOL [Concomitant]
  3. MEXILETINE HCL [Concomitant]

REACTIONS (4)
  - CONDITION AGGRAVATED [None]
  - MUSCULAR WEAKNESS [None]
  - SYNCOPE [None]
  - TORSADE DE POINTES [None]
